FAERS Safety Report 4443716-3 (Version None)
Quarter: 2004Q3

REPORT INFORMATION
  Report Type: 
  Country: None (occurrence: None)
  Receive Date: 20040729
  Receipt Date: 20040729
  Transmission Date: 20050211
  Serious: Yes (Death, Other)
  Sender: FDA-Public Use
  Company Number: USA-2003-0009054

PATIENT
  Age: 21 Year
  Sex: Male

DRUGS (5)
  1. MORPHINE SULFATE [Suspect]
  2. HYDOCODONE BITARTRATE (SIMILAR TO IND 59,175) (HYDROCODONE BITARTRATE) [Suspect]
  3. AMITRIPTYLINE HCL [Suspect]
  4. NORTRIPTYLINE HCL [Suspect]
  5. ACETAMINOPHNE (PARACETAMOL) [Suspect]

REACTIONS (2)
  - DRUG ABUSER [None]
  - MULTIPLE DRUG OVERDOSE [None]
